FAERS Safety Report 15308261 (Version 1)
Quarter: 2018Q3

REPORT INFORMATION
  Report Type: Spontaneous
  Country: DE (occurrence: DE)
  Receive Date: 20180822
  Receipt Date: 20180822
  Transmission Date: 20181010
  Serious: Yes (Other)
  Sender: FDA-Public Use
  Company Number: DE-BAYER-2018-141563

PATIENT
  Age: 24 Year
  Sex: Female
  Weight: 63 kg

DRUGS (4)
  1. ERGENYL [Concomitant]
     Active Substance: VALPROIC ACID
     Indication: BIPOLAR I DISORDER
     Dosage: UNK
  2. KYLEENA [Suspect]
     Active Substance: LEVONORGESTREL
     Indication: CONTRACEPTION
     Dosage: 17.5 MCG/24HR, CONT
     Route: 015
     Dates: start: 20170915, end: 20180719
  3. JAYDESS [Suspect]
     Active Substance: LEVONORGESTREL
     Indication: CONTRACEPTION
     Dosage: 14 MCG/24HR, CONT
     Route: 015
     Dates: start: 2014, end: 20170915
  4. ARTOTEC [Concomitant]
     Active Substance: DICLOFENAC SODIUM\MISOPROSTOL
     Dosage: UNK
     Dates: start: 20170915, end: 20170915

REACTIONS (8)
  - Drug ineffective [None]
  - Oligomenorrhoea [None]
  - Ectopic pregnancy with contraceptive device [None]
  - Peritoneal haemorrhage [None]
  - Pelvic fluid collection [None]
  - Menstruation irregular [None]
  - Abdominal pain lower [None]
  - Haemorrhage in pregnancy [None]

NARRATIVE: CASE EVENT DATE: 20180719
